FAERS Safety Report 24556585 (Version 2)
Quarter: 2024Q4

REPORT INFORMATION
  Report Type: Spontaneous
  Country: US (occurrence: US)
  Receive Date: 20241028
  Receipt Date: 20241127
  Transmission Date: 20250114
  Serious: No
  Sender: PFIZER
  Company Number: US-PFIZER INC-PV202400136953

PATIENT
  Age: 12 Year
  Sex: Male

DRUGS (3)
  1. SOMATROPIN [Suspect]
     Active Substance: SOMATROPIN
     Indication: Growth hormone deficiency
     Dosage: UNK
  2. SOMATROPIN [Suspect]
     Active Substance: SOMATROPIN
     Indication: Hypopituitarism
  3. CORTEF [Concomitant]
     Active Substance: HYDROCORTISONE
     Indication: Illness
     Dosage: 1 DF, 3X/DAY, STRESS DOSE AS NEEDED FOR ILLNESS/INJURY. MAX DAILY DOSE OF 45 MG
     Route: 048

REACTIONS (2)
  - Thyroxine free decreased [Unknown]
  - Weight increased [Unknown]

NARRATIVE: CASE EVENT DATE: 20240418
